FAERS Safety Report 9329638 (Version 2)
Quarter: 2013Q3

REPORT INFORMATION
  Report Type: Spontaneous
  Country: US (occurrence: None)
  Receive Date: 20130531
  Receipt Date: 20130730
  Transmission Date: 20140515
  Serious: Yes (Hospitalization)
  Sender: FDA-Public Use
  Company Number: 2013-0878

PATIENT
  Age: 75 Year
  Sex: Male

DRUGS (14)
  1. KYPROLIS [Suspect]
     Indication: PLASMA CELL MYELOMA
     Route: 042
  2. OMEPRAZOLE [Concomitant]
  3. ROSUVASTATIN [Concomitant]
  4. GLARGINE [Concomitant]
  5. ASPART [Concomitant]
  6. FOLIC ACID [Concomitant]
  7. ZOLPIDEM [Concomitant]
  8. MIRTAZAPINE [Concomitant]
  9. CLOPIDOGREL [Concomitant]
  10. LISINOPRIL [Concomitant]
  11. NITROSTAT [Concomitant]
  12. GUAIFENESIN [Concomitant]
  13. ASPIRIN [Concomitant]
  14. CITALOPRAM [Concomitant]

REACTIONS (1)
  - Myocardial infarction [None]
